FAERS Safety Report 7765490-5 (Version None)
Quarter: 2011Q3

REPORT INFORMATION
  Report Type: 
  Country: None (occurrence: None)
  Receive Date: 20110921
  Receipt Date: 20110907
  Transmission Date: 20111222
  Serious: Yes (Other)
  Sender: FDA-Public Use
  Company Number: PL-TYCO HEALTHCARE/MALLINCKRODT-T201101813

PATIENT
  Age: 53 Year
  Sex: Female

DRUGS (1)
  1. SODIUM IODIDE I-131 SOLUTION [Suspect]
     Indication: TOXIC NODULAR GOITRE
     Dosage: UNK

REACTIONS (1)
  - THYROID CANCER [None]
